FAERS Safety Report 11438463 (Version 1)
Quarter: 2015Q3

REPORT INFORMATION
  Report Type: Spontaneous
  Country: US (occurrence: None)
  Receive Date: 20150828
  Receipt Date: 20150828
  Transmission Date: 20151125
  Serious: Yes (Hospitalization)
  Sender: FDA-Public Use
  Company Number: HA15-234-AE

PATIENT
  Age: 43 Year
  Sex: Male
  Weight: 81.65 kg

DRUGS (7)
  1. SULFAMETHOXAZOLE-TRIMETHOPRIM (SMZ) [Suspect]
     Active Substance: SULFAMETHOXAZOLE\TRIMETHOPRIM
     Indication: BACTERIAL INFECTION
     Dates: start: 20150711, end: 20150713
  2. LYRICA [Concomitant]
     Active Substance: PREGABALIN
  3. GABAPENTIN. [Concomitant]
     Active Substance: GABAPENTIN
  4. LEXAPRO [Concomitant]
     Active Substance: ESCITALOPRAM OXALATE
  5. WELLBUTRIN [Concomitant]
     Active Substance: BUPROPION HYDROCHLORIDE
  6. CELEBREX [Concomitant]
     Active Substance: CELECOXIB
  7. VIAGRA [Concomitant]
     Active Substance: SILDENAFIL CITRATE

REACTIONS (7)
  - Condition aggravated [None]
  - Peripheral swelling [None]
  - Localised infection [None]
  - Nausea [None]
  - Wound infection staphylococcal [None]
  - Drug ineffective [None]
  - Blister [None]

NARRATIVE: CASE EVENT DATE: 20150711
